FAERS Safety Report 21435152 (Version 1)
Quarter: 2022Q4

REPORT INFORMATION
  Report Type: Spontaneous
  Country: CN (occurrence: CN)
  Receive Date: 20221010
  Receipt Date: 20221010
  Transmission Date: 20230113
  Serious: Yes (Hospitalization)
  Sender: FDA-Public Use
  Company Number: CN-BAYER-2022A135229

PATIENT
  Age: 68 Year
  Sex: Male
  Weight: 58 kg

DRUGS (2)
  1. STIVARGA [Suspect]
     Active Substance: REGORAFENIB
     Indication: Chemotherapy
     Dosage: 80 MG, QD
     Route: 048
     Dates: start: 20220905, end: 20220919
  2. RALTITREXED [Suspect]
     Active Substance: RALTITREXED
     Indication: Chemotherapy
     Dosage: 4 MG, QD
     Route: 041
     Dates: start: 20220905, end: 20220905

REACTIONS (2)
  - Myelosuppression [Recovering/Resolving]
  - Off label use [None]

NARRATIVE: CASE EVENT DATE: 20220905
